FAERS Safety Report 7180649-6 (Version None)
Quarter: 2010Q4

REPORT INFORMATION
  Report Type: 
  Country: None (occurrence: None)
  Receive Date: 20101221
  Receipt Date: 20101214
  Transmission Date: 20110411
  Serious: Yes (Other)
  Sender: FDA-Public Use
  Company Number: US-US-EMD SERONO, INC.-430016J09USA

PATIENT
  Sex: Female

DRUGS (4)
  1. NOVANTRONE [Suspect]
     Indication: MULTIPLE SCLEROSIS
     Route: 065
     Dates: start: 20051201, end: 20051201
  2. NOVANTRONE [Suspect]
     Route: 065
     Dates: start: 20070401, end: 20070401
  3. NOVANTRONE [Suspect]
     Route: 065
     Dates: start: 20070901, end: 20070901
  4. NOVANTRONE [Suspect]
     Route: 065
     Dates: start: 20080101, end: 20080101

REACTIONS (1)
  - EJECTION FRACTION DECREASED [None]
